FAERS Safety Report 8857013 (Version 1)
Quarter: 2012Q4

REPORT INFORMATION
  Report Type: 
  Country: US (occurrence: US)
  Receive Date: 20121023
  Receipt Date: 20121023
  Transmission Date: 20130627
  Serious: No
  Sender: FDA-Public Use
  Company Number: US-AMGEN-USASP2012055120

PATIENT
  Sex: Female
  Weight: 90.7 kg

DRUGS (4)
  1. ENBREL [Suspect]
     Indication: PRODUCT USED FOR UNKNOWN INDICATION
     Dosage: 50 mg, qwk
     Route: 058
  2. ENBREL [Suspect]
     Route: 058
  3. LEVOTHYROXIN [Concomitant]
     Dosage: 88 MCG, UNK
  4. MULTIVITAMIN                       /00097801/ [Concomitant]
     Dosage: UNK

REACTIONS (5)
  - Nasopharyngitis [Unknown]
  - Sinus congestion [Unknown]
  - Lacrimation increased [Unknown]
  - Headache [Unknown]
  - Pyrexia [Unknown]
